FAERS Safety Report 25138644 (Version 1)
Quarter: 2025Q1

REPORT INFORMATION
  Report Type: Spontaneous
  Country: GB (occurrence: GB)
  Receive Date: 20250330
  Receipt Date: 20250330
  Transmission Date: 20250409
  Serious: Yes (Hospitalization)
  Sender: JOHNSON AND JOHNSON
  Company Number: GB-JNJFOC-20250364849

PATIENT
  Age: 73 Year
  Sex: Male

DRUGS (6)
  1. ERLEADA [Suspect]
     Active Substance: APALUTAMIDE
     Indication: Hormone-dependent prostate cancer
     Route: 048
     Dates: start: 20230620
  2. AMITRIPTYLINE [Concomitant]
     Active Substance: AMITRIPTYLINE
     Dates: start: 20101013
  3. SIMVASTATIN [Concomitant]
     Active Substance: SIMVASTATIN
     Dates: start: 20140323
  4. SIMVASTATIN [Concomitant]
     Active Substance: SIMVASTATIN
  5. TAMSULOSIN [Concomitant]
     Active Substance: TAMSULOSIN
     Dates: start: 20230223
  6. GOSERELIN [Concomitant]
     Active Substance: GOSERELIN
     Dates: start: 20230623

REACTIONS (2)
  - Penile cancer [Recovering/Resolving]
  - Blood pressure increased [Not Recovered/Not Resolved]

NARRATIVE: CASE EVENT DATE: 20240206
